FAERS Safety Report 10589949 (Version 1)
Quarter: 2014Q4

REPORT INFORMATION
  Report Type: Spontaneous
  Country: US (occurrence: None)
  Receive Date: 20141117
  Receipt Date: 20141117
  Transmission Date: 20150529
  Serious: Yes (Other)
  Sender: FDA-Public Use
  Company Number: None

PATIENT
  Age: 61 Year
  Sex: Male

DRUGS (1)
  1. CAPECITABINE. [Suspect]
     Active Substance: CAPECITABINE
     Indication: NEOPLASM MALIGNANT
     Dosage: 500 MG, (BID) DAYS 1-14
     Route: 048
     Dates: start: 20140918, end: 20141114

REACTIONS (2)
  - Diarrhoea [None]
  - Alopecia [None]

NARRATIVE: CASE EVENT DATE: 20141114
